FAERS Safety Report 4913061-8 (Version None)
Quarter: 2006Q1

REPORT INFORMATION
  Report Type: 
  Country: None (occurrence: None)
  Receive Date: 20060210
  Receipt Date: 20060202
  Transmission Date: 20060701
  Serious: Yes (Hospitalization)
  Sender: FDA-Public Use
  Company Number: 2006016504

PATIENT
  Age: 71 Year
  Sex: Female
  Weight: 68.0396 kg

DRUGS (7)
  1. FRESHBURST LISTERINE MOUTHWASH (MENTHOL, METHYL SALICYLATE, EUCALYPTOL [Suspect]
     Indication: DENTAL DISORDER PROPHYLAXIS
     Dosage: UNSPECIFIED AMOUNT TWICE DAILY, ORAL
     Route: 048
     Dates: end: 20050916
  2. FRESHBURST LISTERINE POCKETPAKS  (MENTHOL, METHYL SALICYLATE, EUCALYPT [Suspect]
     Indication: DENTAL DISORDER PROPHYLAXIS
     Dosage: UNSPECIFIED, ORAL
     Route: 048
     Dates: end: 20050101
  3. ASCORBIC ACID [Concomitant]
  4. DYAZIDE [Concomitant]
  5. ASPIRIN [Concomitant]
  6. POTASSIUM CHLORIDE [Concomitant]
  7. GABAPENTIN [Concomitant]

REACTIONS (4)
  - PAIN [None]
  - SKIN GRAFT [None]
  - SPEECH DISORDER [None]
  - SQUAMOUS CELL CARCINOMA [None]
